FAERS Safety Report 8021690-0 (Version None)
Quarter: 2012Q1

REPORT INFORMATION
  Report Type: 
  Country: None (occurrence: None)
  Receive Date: 20120104
  Receipt Date: 20111229
  Transmission Date: 20120608
  Serious: Yes (Other)
  Sender: FDA-Public Use
  Company Number: PHEH2011US012726

PATIENT
  Sex: Male

DRUGS (2)
  1. ANTIHYPERTENSIVE DRUGS [Suspect]
  2. DIOVAN [Suspect]
     Dosage: 1 DF, QD

REACTIONS (4)
  - RENAL CANCER [None]
  - RENAL FAILURE [None]
  - BLOOD POTASSIUM INCREASED [None]
  - OVERWEIGHT [None]
